FAERS Safety Report 10120739 (Version 2)
Quarter: 2014Q2

REPORT INFORMATION
  Report Type: Spontaneous
  Country: BR (occurrence: BR)
  Receive Date: 20140425
  Receipt Date: 20140430
  Transmission Date: 20141212
  Serious: Yes (Other)
  Sender: FDA-Public Use
  Company Number: PHHY2014BR049521

PATIENT
  Sex: Female

DRUGS (2)
  1. SINVASTACOR [Suspect]
     Dosage: 10 MG, QD
     Route: 048
     Dates: end: 20140419
  2. PURAN T4 [Concomitant]
     Indication: HYPOTHYROIDISM

REACTIONS (3)
  - Angina pectoris [Recovered/Resolved]
  - Palpitations [Recovered/Resolved]
  - Dyspnoea [Recovered/Resolved]
